FAERS Safety Report 4423257-X (Version None)
Quarter: 2004Q3

REPORT INFORMATION
  Report Type: 
  Country: None (occurrence: None)
  Receive Date: 20040805
  Receipt Date: 20040727
  Transmission Date: 20050211
  Serious: Yes (Death)
  Sender: FDA-Public Use
  Company Number: US-JNJFOC-20040707652

PATIENT
  Age: 50 Year
  Sex: Female

DRUGS (1)
  1. RISPERDAL [Suspect]
     Dosage: 2 MG, 1 IN 1 DAY, ORAL
     Route: 048
     Dates: end: 20040601

REACTIONS (1)
  - CARDIAC DISORDER [None]
